FAERS Safety Report 7943955-0 (Version None)
Quarter: 2011Q4

REPORT INFORMATION
  Report Type: 
  Country: None (occurrence: None)
  Receive Date: 20111128
  Receipt Date: 20111116
  Transmission Date: 20120403
  Serious: Yes (Other)
  Sender: FDA-Public Use
  Company Number: CA-ROCHE-1015772

PATIENT
  Sex: Male

DRUGS (1)
  1. XOLAIR [Suspect]
     Indication: ASTHMA
     Route: 058
     Dates: start: 20091109

REACTIONS (5)
  - ACNE [None]
  - THROAT IRRITATION [None]
  - BLOOD PRESSURE INCREASED [None]
  - COUGH [None]
  - INJECTION SITE HAEMATOMA [None]
